FAERS Safety Report 15803455 (Version 1)
Quarter: 2019Q1

REPORT INFORMATION
  Report Type: Spontaneous
  Country: US (occurrence: US)
  Receive Date: 20190109
  Receipt Date: 20190109
  Transmission Date: 20190417
  Serious: Yes (Hospitalization)
  Sender: FDA-Public Use
  Company Number: None

PATIENT
  Age: 74 Year
  Sex: Female

DRUGS (2)
  1. XELJANZ XR [Suspect]
     Active Substance: TOFACITINIB CITRATE
     Indication: RHEUMATOID ARTHRITIS
     Route: 048
     Dates: start: 20180124, end: 20190108
  2. TIKOSYN 500 MCG [Concomitant]
     Dates: start: 20180205

REACTIONS (2)
  - Mastectomy [None]
  - Mastitis [None]

NARRATIVE: CASE EVENT DATE: 20190108
